FAERS Safety Report 6391988-0 (Version None)
Quarter: 2009Q4

REPORT INFORMATION
  Report Type: 
  Country: None (occurrence: None)
  Receive Date: 20091007
  Receipt Date: 20090928
  Transmission Date: 20100525
  Serious: Yes (Hospitalization)
  Sender: FDA-Public Use
  Company Number: B0595238A

PATIENT
  Age: 48 Year
  Sex: Female

DRUGS (4)
  1. RANITIDINE HCL [Suspect]
     Indication: PREMEDICATION
     Route: 042
     Dates: start: 20090724, end: 20090724
  2. SOLU-MEDROL [Suspect]
     Indication: PREMEDICATION
     Route: 042
     Dates: start: 20090724, end: 20090724
  3. POLARAMINE [Suspect]
     Indication: PREMEDICATION
     Dosage: 5MGML UNKNOWN
     Route: 042
     Dates: start: 20090724, end: 20090724
  4. ERBITUX [Suspect]
     Route: 042
     Dates: start: 20090710, end: 20090724

REACTIONS (11)
  - BACK PAIN [None]
  - BLOOD BILIRUBIN UNCONJUGATED INCREASED [None]
  - HAEMATURIA [None]
  - HAEMOLYSIS [None]
  - HEPATOCELLULAR INJURY [None]
  - MALAISE [None]
  - MYALGIA [None]
  - PROTEINURIA [None]
  - RENAL FAILURE [None]
  - RENAL TUBULAR NECROSIS [None]
  - VOMITING [None]
